FAERS Safety Report 7693810-9 (Version None)
Quarter: 2011Q3

REPORT INFORMATION
  Report Type: 
  Country: None (occurrence: None)
  Receive Date: 20110819
  Receipt Date: 20110509
  Transmission Date: 20111222
  Serious: No
  Sender: FDA-Public Use
  Company Number: US-ALLERGAN-1106342US

PATIENT
  Sex: Female

DRUGS (1)
  1. LASTACAFT [Suspect]
     Indication: EYE PRURITUS
     Dosage: 1 GTT, QD
     Route: 047

REACTIONS (2)
  - CONJUNCTIVAL OEDEMA [None]
  - OCULAR HYPERAEMIA [None]
